FAERS Safety Report 9157513 (Version 1)
Quarter: 2013Q1

REPORT INFORMATION
  Report Type: Spontaneous
  Country: US (occurrence: None)
  Receive Date: 20130311
  Receipt Date: 20130311
  Transmission Date: 20140127
  Serious: Yes (Hospitalization)
  Sender: FDA-Public Use
  Company Number: None

PATIENT
  Age: 55 Year
  Sex: Male
  Weight: 73.03 kg

DRUGS (1)
  1. DOCETAXEL [Suspect]
     Indication: LUNG NEOPLASM MALIGNANT
     Dosage: 140 MG EVERY 21 DAYS IV
     Route: 042
     Dates: start: 20130227, end: 20130227

REACTIONS (5)
  - Gait disturbance [None]
  - Hemiparesis [None]
  - Dizziness [None]
  - Diarrhoea [None]
  - Encephalomalacia [None]
